FAERS Safety Report 15486071 (Version 1)
Quarter: 2018Q4

REPORT INFORMATION
  Report Type: Spontaneous
  Country: US (occurrence: US)
  Receive Date: 20181011
  Receipt Date: 20181011
  Transmission Date: 20190205
  Serious: No
  Sender: FDA-Public Use
  Company Number: US-NEUROCRINE BIOSCIENCES INC.-2018NBI02857

PATIENT
  Age: 60 Year
  Sex: Male

DRUGS (4)
  1. INGREZZA [Suspect]
     Active Substance: VALBENAZINE
     Indication: TARDIVE DYSKINESIA
     Dates: start: 2018, end: 2018
  2. GABAPENTIN. [Concomitant]
     Active Substance: GABAPENTIN
  3. OLANZAPINE. [Concomitant]
     Active Substance: OLANZAPINE
  4. CITALOPRAM [Concomitant]
     Active Substance: CITALOPRAM HYDROBROMIDE

REACTIONS (1)
  - Drooling [Unknown]

NARRATIVE: CASE EVENT DATE: 2018
